FAERS Safety Report 21101365 (Version 1)
Quarter: 2022Q3

REPORT INFORMATION
  Report Type: Spontaneous
  Country: AT (occurrence: AT)
  Receive Date: 20220719
  Receipt Date: 20220719
  Transmission Date: 20221027
  Serious: Yes (Other)
  Sender: FDA-Public Use
  Company Number: AT-GILEAD-2022-0589327

PATIENT
  Age: 34 Year
  Sex: Male

DRUGS (1)
  1. BIKTARVY [Suspect]
     Active Substance: BICTEGRAVIR SODIUM\EMTRICITABINE\TENOFOVIR ALAFENAMIDE FUMARATE
     Indication: HIV infection
     Dosage: UNK
     Route: 065

REACTIONS (10)
  - Monkeypox [Unknown]
  - Pyrexia [Unknown]
  - Headache [Unknown]
  - Myalgia [Unknown]
  - Penile ulceration [Unknown]
  - Lymphadenopathy [Unknown]
  - C-reactive protein increased [Unknown]
  - Rash pustular [Unknown]
  - Haemoglobin increased [Unknown]
  - White blood cell count increased [Unknown]

NARRATIVE: CASE EVENT DATE: 20220518
